FAERS Safety Report 10164894 (Version 1)
Quarter: 2014Q2

REPORT INFORMATION
  Report Type: Spontaneous
  Country: US (occurrence: US)
  Receive Date: 20140510
  Receipt Date: 20140510
  Transmission Date: 20141212
  Serious: No
  Sender: FDA-Public Use
  Company Number: US-BRISTOL-MYERS SQUIBB COMPANY-19538404

PATIENT
  Sex: Female
  Weight: 113.38 kg

DRUGS (2)
  1. BYETTA PEN DISPOSABLE [Suspect]
     Dosage: DOSE VALUE 10MCG
  2. INSULIN [Concomitant]

REACTIONS (2)
  - Nausea [Recovered/Resolved]
  - Weight decreased [Recovering/Resolving]
